FAERS Safety Report 20007116 (Version 1)
Quarter: 2021Q4

REPORT INFORMATION
  Report Type: Spontaneous
  Country: US (occurrence: US)
  Receive Date: 20211028
  Receipt Date: 20211028
  Transmission Date: 20220303
  Serious: No
  Sender: FDA-Public Use
  Company Number: US-KYOWAKIRIN-2021BKK017908

PATIENT

DRUGS (2)
  1. SANCUSO [Suspect]
     Active Substance: GRANISETRON
     Indication: Prophylaxis of nausea and vomiting
     Dosage: UNK
     Route: 061
     Dates: start: 20211004
  2. SANCUSO [Suspect]
     Active Substance: GRANISETRON
     Dosage: WEEKLY (BACK TO BACK, APPLY/REMOVE WEEKLY)
     Route: 061
     Dates: start: 2021, end: 202110

REACTIONS (1)
  - Wrong technique in product usage process [Unknown]

NARRATIVE: CASE EVENT DATE: 20211011
